FAERS Safety Report 6693953-2 (Version None)
Quarter: 2010Q2

REPORT INFORMATION
  Report Type: 
  Country: None (occurrence: None)
  Receive Date: 20100423
  Receipt Date: 20100413
  Transmission Date: 20101027
  Serious: Yes (Other)
  Sender: FDA-Public Use
  Company Number: US-PFIZER INC-2010046955

PATIENT
  Sex: Female
  Weight: 81 kg

DRUGS (6)
  1. LIPITOR [Suspect]
     Indication: BLOOD CHOLESTEROL ABNORMAL
     Dosage: UNK
     Route: 048
     Dates: start: 20100101, end: 20100325
  2. METFORMIN HYDROCHLORIDE [Suspect]
     Indication: DIABETES MELLITUS
     Dosage: 500 MG, 2X/DAY
     Route: 048
  3. VALSARTAN [Concomitant]
     Dosage: UNK
     Dates: start: 20000101
  4. AMLODIPINE [Concomitant]
     Dosage: UNK
     Dates: start: 20100114
  5. SITAGLIPTIN [Concomitant]
     Dosage: UNK
     Dates: start: 20100315
  6. VITAMIN D [Concomitant]
     Dosage: UNK

REACTIONS (4)
  - ABDOMINAL DISCOMFORT [None]
  - CATARACT [None]
  - MUSCLE SPASMS [None]
  - PRODUCT ODOUR ABNORMAL [None]
